FAERS Safety Report 22366452 (Version 1)
Quarter: 2023Q2

REPORT INFORMATION
  Report Type: Spontaneous
  Country: US (occurrence: US)
  Receive Date: 20230525
  Receipt Date: 20230525
  Transmission Date: 20230721
  Serious: Yes (Death, Life-Threatening, Hospitalization, Other)
  Sender: FDA-Public Use
  Company Number: US-drreddys-LIT/USA/23/0165939

PATIENT
  Age: 38 Year
  Sex: Male

DRUGS (5)
  1. HEPARIN SODIUM [Suspect]
     Active Substance: HEPARIN SODIUM
     Indication: Ischaemic stroke
  2. CLOPIDOGREL BISULFATE [Suspect]
     Active Substance: CLOPIDOGREL BISULFATE
     Indication: Ischaemic stroke
  3. ATORVASTATIN [Suspect]
     Active Substance: ATORVASTATIN
     Indication: Ischaemic stroke
  4. ALTEPLASE [Suspect]
     Active Substance: ALTEPLASE
     Indication: Ischaemic stroke
  5. ASPIRIN [Suspect]
     Active Substance: ASPIRIN
     Indication: Ischaemic stroke

REACTIONS (9)
  - Haemorrhagic transformation stroke [Fatal]
  - Ischaemic stroke [Fatal]
  - Drug ineffective [Unknown]
  - COVID-19 [Unknown]
  - Cerebral infarction [Unknown]
  - Mental status changes [Unknown]
  - Pupil fixed [Unknown]
  - Hypokinesia [Unknown]
  - Condition aggravated [Unknown]
